FAERS Safety Report 18755253 (Version 1)
Quarter: 2021Q1

REPORT INFORMATION
  Report Type: Spontaneous
  Country: US (occurrence: US)
  Receive Date: 20210115
  Receipt Date: 20210115
  Transmission Date: 20210419
  Serious: Yes (Hospitalization)
  Sender: FDA-Public Use
  Company Number: None

PATIENT
  Age: 40 Year
  Sex: Female
  Weight: 97.5 kg

DRUGS (2)
  1. PEMBROLIZUMAB (MK?3475) (776864) [Suspect]
     Active Substance: PEMBROLIZUMAB
     Dates: end: 20201222
  2. GLEEVEC [Suspect]
     Active Substance: IMATINIB MESYLATE
     Indication: THERAPY INTERRUPTED
     Dates: end: 20210106

REACTIONS (7)
  - Abdominal pain [None]
  - Colitis [None]
  - Nausea [None]
  - Diarrhoea [None]
  - Haematochezia [None]
  - Therapy interrupted [None]
  - Haemoglobin decreased [None]

NARRATIVE: CASE EVENT DATE: 20210104
